FAERS Safety Report 5926475-4 (Version None)
Quarter: 2008Q4

REPORT INFORMATION
  Report Type: 
  Country: None (occurrence: None)
  Receive Date: 20081022
  Receipt Date: 20081014
  Transmission Date: 20090506
  Serious: Yes (Other)
  Sender: FDA-Public Use
  Company Number: PHHY2008DE24771

PATIENT
  Sex: Female

DRUGS (2)
  1. ZOMETA [Suspect]
     Indication: METASTASES TO BONE
     Dosage: 4 MG EVERY 4 WEEKS
     Route: 042
     Dates: start: 20020101
  2. DOXORUBICIN HCL [Concomitant]
     Indication: BREAST CANCER METASTATIC
     Dosage: EVERY 4 WEEKS
     Route: 042
     Dates: start: 20080901

REACTIONS (7)
  - BONE DISORDER [None]
  - FISTULA [None]
  - IMPAIRED HEALING [None]
  - OSTEONECROSIS [None]
  - PURULENT DISCHARGE [None]
  - SEQUESTRECTOMY [None]
  - TOOTH EXTRACTION [None]
